FAERS Safety Report 6975136-1 (Version None)
Quarter: 2010Q3

REPORT INFORMATION
  Report Type: 
  Country: None (occurrence: None)
  Receive Date: 20100910
  Receipt Date: 20090212
  Transmission Date: 20110219
  Serious: No
  Sender: FDA-Public Use
  Company Number: US-WYE-H08191309

PATIENT
  Age: 19 Year
  Sex: Male
  Weight: 59.02 kg

DRUGS (2)
  1. PRISTIQ [Suspect]
     Indication: DISTURBANCE IN ATTENTION
     Route: 048
     Dates: start: 20090210, end: 20090211
  2. PRISTIQ [Suspect]
     Route: 048
     Dates: start: 20090212

REACTIONS (4)
  - FATIGUE [None]
  - FEELING ABNORMAL [None]
  - FEELING OF RELAXATION [None]
  - SUDDEN ONSET OF SLEEP [None]
